FAERS Safety Report 7485945-0 (Version None)
Quarter: 2011Q2

REPORT INFORMATION
  Report Type: 
  Country: None (occurrence: None)
  Receive Date: 20110517
  Receipt Date: 20110211
  Transmission Date: 20111010
  Serious: Yes (Other)
  Sender: FDA-Public Use
  Company Number: US-BAYER-2011-014142

PATIENT

DRUGS (1)
  1. AVELOX [Suspect]

REACTIONS (1)
  - HEPATOTOXICITY [None]
